FAERS Safety Report 16669076 (Version 1)
Quarter: 2019Q3

REPORT INFORMATION
  Report Type: Report from Study
  Country: None (occurrence: US)
  Receive Date: 20190805
  Receipt Date: 20190805
  Transmission Date: 20191004
  Serious: Yes (Other)
  Sender: FDA-Public Use
  Company Number: US-BIOVITRUM-2019US2392

PATIENT
  Sex: Female

DRUGS (1)
  1. KINERET [Suspect]
     Active Substance: ANAKINRA
     Indication: STILL^S DISEASE
     Route: 058

REACTIONS (4)
  - Off label use [Not Recovered/Not Resolved]
  - Product dose omission [Recovered/Resolved]
  - Needle issue [Recovered/Resolved]
  - Interstitial lung disease [Unknown]
